FAERS Safety Report 7056268-9 (Version None)
Quarter: 2010Q4

REPORT INFORMATION
  Report Type: 
  Country: None (occurrence: None)
  Receive Date: 20101021
  Receipt Date: 20101012
  Transmission Date: 20110411
  Serious: Yes (Other)
  Sender: FDA-Public Use
  Company Number: US-AMGEN GMBH-QUU441973

PATIENT

DRUGS (4)
  1. NPLATE [Suspect]
     Indication: IDIOPATHIC THROMBOCYTOPENIC PURPURA
     Dosage: 120 A?G, QWK
     Route: 058
     Dates: start: 20100802, end: 20100810
  2. CORTICOSTEROID NOS [Concomitant]
  3. IMMU-G [Concomitant]
     Dosage: UNK UNK, UNK
     Dates: end: 20100409
  4. RITUXIMAB [Concomitant]
     Dosage: UNK UNK, UNK
     Dates: start: 20061219

REACTIONS (1)
  - DRUG INEFFECTIVE [None]
